FAERS Safety Report 10342441 (Version 2)
Quarter: 2014Q3

REPORT INFORMATION
  Report Type: Report from Study
  Country: US (occurrence: US)
  Receive Date: 20140725
  Receipt Date: 20140827
  Transmission Date: 20150326
  Serious: Yes (Other)
  Sender: FDA-Public Use
  Company Number: US-ELI_LILLY_AND_COMPANY-US201407005815

PATIENT
  Age: 46 Year
  Sex: Male
  Weight: 70.3 kg

DRUGS (8)
  1. DOCUSATE SODIUM. [Concomitant]
     Active Substance: DOCUSATE SODIUM
     Indication: CONSTIPATION
     Dosage: 250 MG, QD
  2. DEPAKOTE ER [Concomitant]
     Active Substance: DIVALPROEX SODIUM
     Indication: MANIA
     Dosage: 1000 MG, BID
  3. OLANZAPINE LONG-ACTING IM [Suspect]
     Active Substance: OLANZAPINE PAMOATE
     Indication: SCHIZOPHRENIA
     Dosage: 300 MG, UNK
     Route: 030
     Dates: start: 20110119
  4. HALDOL [Concomitant]
     Active Substance: HALOPERIDOL
     Dosage: 10 MG, EACH EVENING
  5. COGENTIN [Concomitant]
     Active Substance: BENZTROPINE MESYLATE
     Indication: ADVERSE DRUG REACTION
     Dosage: 1 MG, BID
  6. LISINOPRIL. [Concomitant]
     Active Substance: LISINOPRIL
     Indication: HYPERTENSION
     Dosage: 10 MG, QD
  7. SYNTHROID [Concomitant]
     Active Substance: LEVOTHYROXINE SODIUM
     Dosage: 88 UG, QD
  8. CYMBALTA [Concomitant]
     Active Substance: DULOXETINE HYDROCHLORIDE
     Indication: DEPRESSION
     Dosage: 60 MG, QD

REACTIONS (5)
  - Depressed level of consciousness [Unknown]
  - Dysarthria [Unknown]
  - Muscle twitching [Unknown]
  - Musculoskeletal stiffness [Unknown]
  - Sedation [Unknown]

NARRATIVE: CASE EVENT DATE: 20140714
